FAERS Safety Report 4869873-2 (Version None)
Quarter: 2005Q4

REPORT INFORMATION
  Report Type: 
  Country: None (occurrence: None)
  Receive Date: 20051227
  Receipt Date: 20051213
  Transmission Date: 20060501
  Serious: Yes (Hospitalization)
  Sender: FDA-Public Use
  Company Number: US016520

PATIENT
  Age: 64 Year
  Sex: Female

DRUGS (6)
  1. PROVIGIL [Suspect]
     Dates: end: 20051101
  2. WELLBUTRIN [Suspect]
  3. PEG-INTRON [Suspect]
     Indication: HEPATITIS C
     Dates: start: 20050324
  4. RIBASPHERE [Suspect]
     Indication: HEPATITIS C
     Dates: start: 20050324
  5. EFFEXOR XR [Concomitant]
  6. TOPAMAX [Concomitant]

REACTIONS (7)
  - ABDOMINAL PAIN UPPER [None]
  - APHASIA [None]
  - ASTHENIA [None]
  - DYSKINESIA [None]
  - DYSPHEMIA [None]
  - HYPOAESTHESIA [None]
  - LOSS OF CONTROL OF LEGS [None]
